FAERS Safety Report 12756557 (Version 3)
Quarter: 2016Q4

REPORT INFORMATION
  Report Type: Spontaneous
  Country: US (occurrence: US)
  Receive Date: 20160917
  Receipt Date: 20161007
  Transmission Date: 20170207
  Serious: Yes (Other)
  Sender: FDA-Public Use
  Company Number: US-SUN PHARMACEUTICAL INDUSTRIES LTD-2016US-113438

PATIENT
  Age: 53 Year
  Sex: Male

DRUGS (1)
  1. MINOXIDIL. [Suspect]
     Active Substance: MINOXIDIL
     Indication: HYPERTENSION
     Dosage: STARTED 2 YEARS AGO
     Route: 065

REACTIONS (3)
  - Pleural effusion [Recovering/Resolving]
  - Toxicity to various agents [Recovering/Resolving]
  - Pericardial effusion [Recovering/Resolving]
